FAERS Safety Report 9990908 (Version 2)
Quarter: 2014Q1

REPORT INFORMATION
  Report Type: Report from Study
  Country: US (occurrence: US)
  Receive Date: 20140310
  Receipt Date: 20140310
  Transmission Date: 20141002
  Serious: No
  Sender: FDA-Public Use
  Company Number: US-ABBVIE-13P-163-1132742-00

PATIENT
  Age: 66 Year
  Sex: Female
  Weight: 127.12 kg

DRUGS (5)
  1. HUMIRA [Suspect]
     Indication: PYODERMA GANGRENOSUM
     Route: 058
     Dates: start: 201202, end: 201212
  2. HUMIRA [Suspect]
     Route: 058
     Dates: start: 20130710
  3. UNKNOWN MEDICATION [Concomitant]
     Indication: THYROID DISORDER
  4. ADVAIR [Concomitant]
     Indication: PRODUCT USED FOR UNKNOWN INDICATION
  5. PROAIR [Concomitant]
     Indication: PRODUCT USED FOR UNKNOWN INDICATION

REACTIONS (7)
  - Contusion [Unknown]
  - Scab [Unknown]
  - Blister [Unknown]
  - Blister [Unknown]
  - Burning sensation [Unknown]
  - Pyoderma gangrenosum [Unknown]
  - Off label use [Unknown]
